FAERS Safety Report 16248798 (Version 1)
Quarter: 2019Q2

REPORT INFORMATION
  Report Type: Spontaneous
  Country: FR (occurrence: FR)
  Receive Date: 20190429
  Receipt Date: 20190429
  Transmission Date: 20190711
  Serious: Yes (Other)
  Sender: FDA-Public Use
  Company Number: FR-AUROBINDO-AUR-APL-2019-021730

PATIENT

DRUGS (3)
  1. CETIRIZINE [Suspect]
     Active Substance: CETIRIZINE HYDROCHLORIDE
     Indication: PRODUCT USED FOR UNKNOWN INDICATION
     Dosage: 1 DOSAGE FORM, DAILY
     Route: 048
     Dates: start: 20190225
  2. KETOPROFEN ARROW LP 100 MG PROLONGED RELEASE SCORED TABLETS [Suspect]
     Active Substance: KETOPROFEN
     Indication: PAIN
     Dosage: 2 DOSAGE FORM, DAILY
     Route: 048
     Dates: start: 20190225
  3. IXPRIM [Suspect]
     Active Substance: ACETAMINOPHEN\TRAMADOL HYDROCHLORIDE
     Indication: PAIN
     Dosage: UNK
     Route: 048
     Dates: start: 20190225

REACTIONS (2)
  - Urinary retention [Unknown]
  - Constipation [Unknown]

NARRATIVE: CASE EVENT DATE: 20190226
